FAERS Safety Report 22085127 (Version 2)
Quarter: 2024Q1

REPORT INFORMATION
  Report Type: Spontaneous
  Country: DE (occurrence: DE)
  Receive Date: 20230310
  Receipt Date: 20240320
  Transmission Date: 20240410
  Serious: Yes (Life-Threatening, Hospitalization, Disabling, Other)
  Sender: FDA-Public Use
  Company Number: DE-GUERBET-DE-20210024

PATIENT
  Age: 66 Year
  Sex: Female
  Weight: 60 kg

DRUGS (2)
  1. DOTAREM [Suspect]
     Active Substance: GADOTERATE MEGLUMINE
     Indication: Magnetic resonance imaging head
     Dosage: PRODUCT START DATE- 25-JUNE -2014
     Route: 065
     Dates: start: 2014, end: 2014
  2. SODIUM CHLORIDE [Concomitant]
     Active Substance: SODIUM CHLORIDE
     Indication: Product used for unknown indication
     Dosage: START DATE: 25 JUNE 2014
     Dates: start: 2014, end: 2014

REACTIONS (13)
  - Thunderclap headache [Recovered/Resolved with Sequelae]
  - Paralysis [Not Recovered/Not Resolved]
  - Loss of consciousness [Recovered/Resolved with Sequelae]
  - Haemorrhagic stroke [Recovered/Resolved with Sequelae]
  - Skin cancer [Not Recovered/Not Resolved]
  - Disability [Not Recovered/Not Resolved]
  - Central nervous system lesion [Not Recovered/Not Resolved]
  - Fracture [Unknown]
  - Fall [Unknown]
  - Impaired quality of life [Not Recovered/Not Resolved]
  - Mobility decreased [Not Recovered/Not Resolved]
  - Depression [Not Recovered/Not Resolved]
  - Suicidal ideation [Not Recovered/Not Resolved]

NARRATIVE: CASE EVENT DATE: 20140101
